APPROVED DRUG PRODUCT: AMINOPHYLLINE
Active Ingredient: AMINOPHYLLINE
Strength: 100MG
Dosage Form/Route: TABLET;ORAL
Application: A088297 | Product #001
Applicant: BARR LABORATORIES INC
Approved: Aug 19, 1983 | RLD: No | RS: No | Type: DISCN